FAERS Safety Report 4401197-X (Version None)
Quarter: 2004Q3

REPORT INFORMATION
  Report Type: 
  Country: None (occurrence: None)
  Receive Date: 20040907
  Receipt Date: 20031216
  Transmission Date: 20050211
  Serious: No
  Sender: FDA-Public Use
  Company Number: US-BRISTOL-MYERS SQUIBB COMPANY-12459129

PATIENT
  Age: 52 Year
  Sex: Male
  Weight: 89 kg

DRUGS (5)
  1. COUMADIN [Suspect]
     Indication: AORTIC VALVE REPLACEMENT
     Dosage: 8/22/03:START 2MG QD; 11/03:ADJUST TO 4MG QD; 2+1/2 WEEKS AGO, INCREASED TO 4.5MG QD.
     Route: 048
     Dates: start: 20030822
  2. ROBITUSSIN [Concomitant]
     Indication: NASOPHARYNGITIS
  3. DIMETAPP [Concomitant]
     Indication: NASOPHARYNGITIS
  4. LISINOPRIL [Concomitant]
  5. MULTIVITAMIN [Concomitant]

REACTIONS (1)
  - INTERNATIONAL NORMALISED RATIO DECREASED [None]
